FAERS Safety Report 9886845 (Version 1)
Quarter: 2014Q1

REPORT INFORMATION
  Report Type: Spontaneous
  Country: US (occurrence: US)
  Receive Date: 20140210
  Receipt Date: 20140210
  Transmission Date: 20141002
  Serious: No
  Sender: FDA-Public Use
  Company Number: US-009507513-1402USA002845

PATIENT
  Age: 42 Year
  Sex: Female

DRUGS (5)
  1. CORICIDIN HBP COUGH AND COLD [Suspect]
     Indication: OROPHARYNGEAL PAIN
     Dosage: UNK, UNKNOWN
     Route: 048
     Dates: start: 20140122
  2. CORICIDIN HBP COUGH AND COLD [Suspect]
     Indication: RHINORRHOEA
  3. CORICIDIN HBP COUGH AND COLD [Suspect]
     Indication: SNEEZING
  4. CORICIDIN HBP COUGH AND COLD [Suspect]
     Indication: MUSCULOSKELETAL STIFFNESS
  5. CORICIDIN HBP COUGH AND COLD [Suspect]
     Indication: EAR PAIN

REACTIONS (1)
  - Drug effect decreased [Unknown]
